FAERS Safety Report 26037556 (Version 3)
Quarter: 2025Q4

REPORT INFORMATION
  Report Type: Report from Study
  Country: BR (occurrence: None)
  Receive Date: 20251112
  Receipt Date: 20251225
  Transmission Date: 20260118
  Serious: Yes (Hospitalization, Other)
  Sender: IONIS PHARMACEUTICALS
  Company Number: BR-AKCEA THERAPEUTICS, INC.-2025IS002762

PATIENT
  Age: 70 Year
  Weight: 70 kg

DRUGS (7)
  1. TEGSEDI [Suspect]
     Active Substance: INOTERSEN SODIUM
     Indication: Hereditary neuropathic amyloidosis
     Dosage: 284 MILLIGRAM /1.5ML, QW
  2. TEGSEDI [Suspect]
     Active Substance: INOTERSEN SODIUM
     Dosage: 284 MILLIGRAM, QW
  3. TEGSEDI [Suspect]
     Active Substance: INOTERSEN SODIUM
     Dosage: 284 MILLIGRAM, QW
  4. Combodart (Dutasteride 0.5 + Tamsulosin 0.4 mg) [Concomitant]
     Indication: Product used for unknown indication
     Dosage: 0.5+0.4 MG
     Route: 065
  5. CENTRUM (Vitamins A, C, D, E, K, B complex (B1, B2, B3, B5, B6, B7, B9 [Concomitant]
     Indication: Product used for unknown indication
     Dosage: 1 DOSAGE FORM, QD
     Route: 065
  6. TAFAMIDIS [Concomitant]
     Active Substance: TAFAMIDIS
     Indication: Product used for unknown indication
     Dosage: UNK
     Route: 065
  7. AMVUTTRA [Concomitant]
     Active Substance: VUTRISIRAN
     Indication: Hereditary neuropathic amyloidosis
     Route: 065

REACTIONS (7)
  - Anaphylactic reaction [Recovered/Resolved]
  - Renal impairment [Unknown]
  - Thrombocytopenia [Unknown]
  - Bowel movement irregularity [Unknown]
  - Influenza like illness [Unknown]
  - Diarrhoea [Unknown]
  - Renal cyst [Unknown]
